FAERS Safety Report 4455597-2 (Version None)
Quarter: 2004Q3

REPORT INFORMATION
  Report Type: 
  Country: None (occurrence: None)
  Receive Date: 20040922
  Receipt Date: 20040827
  Transmission Date: 20050211
  Serious: Yes (Other)
  Sender: FDA-Public Use
  Company Number: 200416480US

PATIENT
  Sex: Female
  Weight: 59 kg

DRUGS (5)
  1. KETEK [Suspect]
     Indication: SINUSITIS
     Route: 048
     Dates: start: 20040813, end: 20040815
  2. PREMARIN [Concomitant]
     Route: 048
  3. DETROL [Concomitant]
     Indication: URINARY INCONTINENCE
     Route: 048
     Dates: start: 20030301
  4. WELLBUTRIN SR [Concomitant]
     Indication: DEPRESSION
     Route: 048
     Dates: start: 20010401
  5. SYNTHROID [Concomitant]
     Indication: HYPOTHYROIDISM

REACTIONS (2)
  - BLOOD PRESSURE INCREASED [None]
  - CHEST PAIN [None]
